FAERS Safety Report 23816978 (Version 1)
Quarter: 2024Q2

REPORT INFORMATION
  Report Type: Spontaneous
  Country: US (occurrence: US)
  Receive Date: 20240504
  Receipt Date: 20240504
  Transmission Date: 20240717
  Serious: Yes (Hospitalization)
  Sender: FDA-Public Use
  Company Number: US-002147023-NVSC2024US087338

PATIENT

DRUGS (1)
  1. KESIMPTA [Suspect]
     Active Substance: OFATUMUMAB
     Indication: Product used for unknown indication
     Dosage: UNK
     Route: 065

REACTIONS (5)
  - Viral infection [Unknown]
  - Illness [Unknown]
  - COVID-19 [Unknown]
  - Alopecia [Unknown]
  - Weight decreased [Unknown]
